FAERS Safety Report 16826269 (Version 1)
Quarter: 2019Q3

REPORT INFORMATION
  Report Type: Spontaneous
  Country: US (occurrence: US)
  Receive Date: 20190919
  Receipt Date: 20190919
  Transmission Date: 20191005
  Serious: Yes (Hospitalization)
  Sender: FDA-Public Use
  Company Number: US-ACCORD-155086

PATIENT
  Age: 41 Year
  Sex: Female

DRUGS (2)
  1. VALPROIC ACID. [Concomitant]
     Active Substance: VALPROIC ACID
     Indication: MOOD SWINGS
     Dosage: 1000 MG IN AM AND 1500 MG IN PM
  2. CLOZAPINE. [Suspect]
     Active Substance: CLOZAPINE
     Indication: SCHIZOAFFECTIVE DISORDER BIPOLAR TYPE

REACTIONS (6)
  - Vision blurred [Unknown]
  - Malaise [Unknown]
  - Drug ineffective [Unknown]
  - Constipation [Unknown]
  - Tachycardia [Unknown]
  - Sedation [Unknown]
